FAERS Safety Report 5652738-6 (Version None)
Quarter: 2008Q1

REPORT INFORMATION
  Report Type: 
  Country: None (occurrence: None)
  Receive Date: 20080131
  Receipt Date: 20071006
  Transmission Date: 20080703
  Serious: No
  Sender: FDA-Public Use
  Company Number: US200710001880

PATIENT
  Age: 31 Year
  Sex: Female

DRUGS (3)
  1. BYETTA [Suspect]
     Indication: GLUCOSE TOLERANCE IMPAIRED
     Dosage: 5 UG,2/D,SUBCUTANEOUS
     Route: 058
     Dates: start: 20071004, end: 20071005
  2. SYNTHROID [Concomitant]
  3. ORAL CONTRACEPTIVE NOS [Concomitant]

REACTIONS (4)
  - DRUG DISPENSING ERROR [None]
  - HEADACHE [None]
  - NAUSEA [None]
  - WRONG DRUG ADMINISTERED [None]
